FAERS Safety Report 6879324-4 (Version None)
Quarter: 2010Q3

REPORT INFORMATION
  Report Type: 
  Country: None (occurrence: None)
  Receive Date: 20100728
  Receipt Date: 20100715
  Transmission Date: 20110219
  Serious: Yes (Other)
  Sender: FDA-Public Use
  Company Number: CH-JNJFOC-20100703806

PATIENT
  Age: 37 Year
  Sex: Female
  Weight: 117 kg

DRUGS (19)
  1. RISPERDAL [Suspect]
     Indication: PRODUCT USED FOR UNKNOWN INDICATION
     Route: 048
  2. RISPERDAL [Suspect]
     Route: 048
  3. RISPERDAL [Suspect]
     Route: 048
  4. DEPAKENE [Suspect]
     Indication: PRODUCT USED FOR UNKNOWN INDICATION
     Route: 048
  5. DEPAKENE [Suspect]
     Route: 048
  6. DEPAKENE [Suspect]
     Route: 048
  7. DEPAKENE [Suspect]
     Route: 048
  8. ZYPREXA [Suspect]
     Indication: PRODUCT USED FOR UNKNOWN INDICATION
     Route: 048
  9. ZYPREXA [Suspect]
     Route: 048
  10. CITALOPRAM HYDROBROMIDE [Suspect]
     Indication: PRODUCT USED FOR UNKNOWN INDICATION
     Route: 048
  11. CITALOPRAM HYDROBROMIDE [Suspect]
     Route: 048
  12. ENTUMIN [Suspect]
     Indication: PRODUCT USED FOR UNKNOWN INDICATION
     Route: 048
  13. ENTUMIN [Suspect]
     Route: 048
  14. SOLIAN [Suspect]
     Indication: PRODUCT USED FOR UNKNOWN INDICATION
     Route: 048
  15. FLUOXETINE [Concomitant]
     Route: 048
  16. FLUOXETINE [Concomitant]
     Route: 048
  17. FLUOXETINE [Concomitant]
     Route: 048
  18. FLUOXETINE [Concomitant]
     Route: 048
  19. FLUOXETINE [Concomitant]
     Route: 048

REACTIONS (2)
  - OBESITY [None]
  - WEIGHT INCREASED [None]
